FAERS Safety Report 4337718-5 (Version None)
Quarter: 2004Q2

REPORT INFORMATION
  Report Type: 
  Country: None (occurrence: None)
  Receive Date: 20040413
  Receipt Date: 20040322
  Transmission Date: 20050107
  Serious: Yes (Death, Hospitalization)
  Sender: FDA-Public Use
  Company Number: JP-ROCHE-362261

PATIENT
  Age: 74 Year
  Sex: Male

DRUGS (12)
  1. PANALDINE [Suspect]
     Route: 048
     Dates: start: 20031017, end: 20040216
  2. DIGITALIS [Suspect]
     Indication: DRUG USE FOR UNKNOWN INDICATION
     Dosage: DRUG REPORTED AS DIGITALIS PURPUREA
     Route: 065
  3. IRESSA [Concomitant]
     Indication: NON-SMALL CELL LUNG CANCER
     Route: 048
     Dates: start: 20031015
  4. CISPLATIN [Concomitant]
     Dates: start: 20000615
  5. FILDESIN [Concomitant]
     Dates: start: 20000615
  6. ITOROL [Concomitant]
     Indication: ANGINA PECTORIS
     Route: 048
  7. ASPIRIN [Concomitant]
     Indication: ANGINA PECTORIS
     Route: 048
  8. LANIRAPID [Concomitant]
     Indication: ATRIAL FIBRILLATION
     Dosage: THERAPY WAS STARTED A LONG TIME AGO.
     Route: 048
     Dates: end: 20040215
  9. ISALON [Concomitant]
     Indication: GASTRITIS
     Dosage: THERAPY WAS STARTED A LONG TIME AGO.
     Route: 048
     Dates: end: 20040215
  10. FERO-GRADUMET [Concomitant]
     Indication: ANAEMIA
     Dosage: THERAPY WAS STARTED A LONG TIME AGO.
     Route: 048
     Dates: end: 20040215
  11. CINAL [Concomitant]
     Indication: ANAEMIA
     Dosage: THERAPY WAS STARTED A LONG TIME AGO.
     Route: 048
     Dates: end: 20040215
  12. MAGNESIUM OXIDE [Concomitant]
     Dosage: THERAPY WAS STARTED A LONG TIME AGO.
     Route: 048

REACTIONS (5)
  - CARDIO-RESPIRATORY ARREST [None]
  - DEPRESSED LEVEL OF CONSCIOUSNESS [None]
  - HYPOTENSION [None]
  - LEUKOPENIA [None]
  - PNEUMONIA [None]
